FAERS Safety Report 5361710-5 (Version None)
Quarter: 2007Q2

REPORT INFORMATION
  Report Type: 
  Country: None (occurrence: None)
  Receive Date: 20070517
  Receipt Date: 20070517
  Transmission Date: 20071010
  Serious: Yes (Other)
  Sender: FDA-Public Use
  Company Number: None

PATIENT
  Age: 32 Year
  Sex: Female

DRUGS (1)
  1. PARAGUARD IUD [Suspect]
     Dates: start: 20050221, end: 20070112

REACTIONS (2)
  - ABORTION INDUCED [None]
  - PREGNANCY WITH CONTRACEPTIVE DEVICE [None]
